FAERS Safety Report 18181294 (Version 3)
Quarter: 2020Q3

REPORT INFORMATION
  Report Type: Spontaneous
  Country: DE (occurrence: DE)
  Receive Date: 20200821
  Receipt Date: 20200929
  Transmission Date: 20201103
  Serious: Yes (Life-Threatening, Other)
  Sender: FDA-Public Use
  Company Number: NVSC2020DE230152

PATIENT
  Age: 31 Year
  Sex: Male
  Weight: 154 kg

DRUGS (1)
  1. QUETIAPINE. [Suspect]
     Active Substance: QUETIAPINE
     Indication: SCHIZOPHRENIA
     Dosage: UNK (VERSCHIEDEN ST?RKEN EINGENOMMEN 800 MG, 600 MG, 400 MG, AKTUELL 300 MG)
     Route: 065
     Dates: start: 20091001

REACTIONS (18)
  - Adverse reaction [Not Recovered/Not Resolved]
  - Dry throat [Unknown]
  - Restlessness [Unknown]
  - Pigmentation disorder [Unknown]
  - Dyspnoea [Unknown]
  - Cerebral disorder [Not Recovered/Not Resolved]
  - Movement disorder [Unknown]
  - Mental disorder [Unknown]
  - Respiration abnormal [Unknown]
  - Constipation [Unknown]
  - Immune system disorder [Not Recovered/Not Resolved]
  - Asthenia [Not Recovered/Not Resolved]
  - Illusion [Unknown]
  - Insomnia [Unknown]
  - Cardiovascular disorder [Unknown]
  - Drug dependence [Unknown]
  - Loss of personal independence in daily activities [Unknown]
  - Nervous system disorder [Unknown]

NARRATIVE: CASE EVENT DATE: 2011
